FAERS Safety Report 5367922-9 (Version None)
Quarter: 2007Q2

REPORT INFORMATION
  Report Type: 
  Country: None (occurrence: None)
  Receive Date: 20070622
  Receipt Date: 20070612
  Transmission Date: 20071010
  Serious: Yes (Other)
  Sender: FDA-Public Use
  Company Number: US-AMGEN-US223224

PATIENT
  Sex: Female
  Weight: 56.3 kg

DRUGS (14)
  1. EPOGEN [Suspect]
     Indication: RENAL FAILURE CHRONIC
     Route: 058
     Dates: start: 20070301
  2. ARANESP [Suspect]
     Indication: RENAL FAILURE CHRONIC
     Route: 058
     Dates: start: 20070401
  3. SENSIPAR [Concomitant]
  4. CELLCEPT [Concomitant]
  5. PREDNISONE TAB [Concomitant]
  6. CLONIDINE [Concomitant]
  7. LABETALOL HCL [Concomitant]
  8. ASPIRIN [Concomitant]
  9. LASIX [Concomitant]
  10. NORVASC [Concomitant]
  11. ERGOCALCIFEROL [Concomitant]
  12. VALIUM [Concomitant]
  13. HYDROCODONE BITARTRATE [Concomitant]
  14. CYCLOSPORINE [Concomitant]

REACTIONS (3)
  - APLASIA PURE RED CELL [None]
  - ERYTHEMA INFECTIOSUM [None]
  - NORMOCHROMIC NORMOCYTIC ANAEMIA [None]
